FAERS Safety Report 13417536 (Version 8)
Quarter: 2019Q3

REPORT INFORMATION
  Report Type: Spontaneous
  Country: BR (occurrence: BR)
  Receive Date: 20170407
  Receipt Date: 20190919
  Transmission Date: 20191004
  Serious: Yes (Other)
  Sender: FDA-Public Use
  Company Number: BR-PFIZER INC-2017134675

PATIENT
  Age: 66 Year
  Sex: Female
  Weight: 56 kg

DRUGS (10)
  1. XALATAN [Suspect]
     Active Substance: LATANOPROST
     Indication: OPEN ANGLE GLAUCOMA
     Dosage: 1.5 UG, DAILY, EACH EYE, AT NIGHT
     Route: 031
     Dates: start: 2009
  2. XALATAN [Suspect]
     Active Substance: LATANOPROST
     Dosage: 1 DROP IN EACH EYE PER DAY
     Route: 031
  3. XALATAN [Suspect]
     Active Substance: LATANOPROST
     Dosage: 1 DROP IN EACH EYE PER DAY
     Route: 031
  4. XALATAN [Suspect]
     Active Substance: LATANOPROST
     Dosage: 1.5 UG, DAILY, EACH EYE, AT NIGHT
     Route: 031
     Dates: start: 2009
  5. PILOCARPINE. [Concomitant]
     Active Substance: PILOCARPINE
     Dosage: UNK
     Dates: start: 2008
  6. XALATAN [Suspect]
     Active Substance: LATANOPROST
     Indication: INTRAOCULAR PRESSURE INCREASED
     Dosage: 1.5 UG, DAILY, EACH EYE, AT NIGHT
     Route: 031
     Dates: start: 2009
  7. XALATAN [Suspect]
     Active Substance: LATANOPROST
     Dosage: 1.5 UG, DAILY, EACH EYE, AT NIGHT
     Route: 031
     Dates: start: 2009
  8. XALATAN [Suspect]
     Active Substance: LATANOPROST
     Dosage: 1 DROP IN EACH EYE PER DAY
     Route: 031
  9. XALATAN [Suspect]
     Active Substance: LATANOPROST
     Dosage: 1 DROP IN EACH EYE PER DAY
     Route: 031
  10. TIMOLOL. [Concomitant]
     Active Substance: TIMOLOL
     Dosage: UNK
     Dates: start: 2008

REACTIONS (9)
  - Aphonia [Not Recovered/Not Resolved]
  - Product container issue [Unknown]
  - Accidental exposure to product [Unknown]
  - Cataract [Not Recovered/Not Resolved]
  - Labyrinthitis [Unknown]
  - Tympanic membrane perforation [Not Recovered/Not Resolved]
  - Exposure via skin contact [Unknown]
  - Condition aggravated [Unknown]
  - Underdose [Unknown]

NARRATIVE: CASE EVENT DATE: 2017
